FAERS Safety Report 9490996 (Version 2)
Quarter: 2013Q4

REPORT INFORMATION
  Report Type: Spontaneous
  Country: US (occurrence: US)
  Receive Date: 20130830
  Receipt Date: 20131120
  Transmission Date: 20140711
  Serious: No
  Sender: FDA-Public Use
  Company Number: US-PFIZER INC-2013248956

PATIENT
  Age: 76 Year
  Sex: Male
  Weight: 129 kg

DRUGS (5)
  1. VIAGRA [Suspect]
     Indication: ERECTILE DYSFUNCTION
     Dosage: 100 MG, DAILY
     Dates: start: 2009
  2. VIAGRA [Suspect]
     Dosage: 100 MG, AS NEEDED
  3. METFORMIN [Concomitant]
     Indication: DIABETES MELLITUS
     Dosage: 1000 MG, 2X/DAY
  4. VICTOZA [Concomitant]
     Indication: DIABETES MELLITUS
     Dosage: 1.8 ML, DAILY
  5. VYTORIN [Concomitant]
     Indication: BLOOD CHOLESTEROL INCREASED
     Dosage: (10/180MG TABLET BY SPLITTING IT INTO HALF) DAILY

REACTIONS (1)
  - Drug ineffective [Unknown]
